FAERS Safety Report 4938687-7 (Version None)
Quarter: 2006Q1

REPORT INFORMATION
  Report Type: 
  Country: None (occurrence: None)
  Receive Date: 20060127
  Receipt Date: 20051201
  Transmission Date: 20060701
  Serious: Yes (Other)
  Sender: FDA-Public Use
  Company Number: 2005145970

PATIENT

DRUGS (2)
  1. LYRICA [Suspect]
     Indication: NEURALGIA
     Dosage: 225 MG (75 MG,3 IN 1 D)
  2. AMBIEN [Suspect]
     Indication: SLEEP DISORDER
     Dosage: 10 MG (10 MG,1 IN 1 D)

REACTIONS (3)
  - ABNORMAL DREAMS [None]
  - DRUG INTERACTION [None]
  - SOMNOLENCE [None]
